FAERS Safety Report 11026534 (Version 1)
Quarter: 2015Q2

REPORT INFORMATION
  Report Type: Spontaneous
  Country: US (occurrence: US)
  Receive Date: 20150414
  Receipt Date: 20150414
  Transmission Date: 20150821
  Serious: No
  Sender: FDA-Public Use
  Company Number: US-BAYER-2015-063764

PATIENT
  Age: 53 Year
  Sex: Female

DRUGS (3)
  1. MAGNEVIST [Suspect]
     Active Substance: GADOPENTETATE DIMEGLUMINE
     Indication: SYSTEMIC LUPUS ERYTHEMATOSUS
  2. MAGNEVIST [Suspect]
     Active Substance: GADOPENTETATE DIMEGLUMINE
     Indication: ASTHENIA
  3. MAGNEVIST [Suspect]
     Active Substance: GADOPENTETATE DIMEGLUMINE
     Indication: NUCLEAR MAGNETIC RESONANCE IMAGING BRAIN
     Dosage: UNK, ONCE
     Dates: start: 20150225, end: 20150225

REACTIONS (3)
  - Nasal congestion [Recovered/Resolved]
  - Swelling face [Recovered/Resolved]
  - Face oedema [Recovered/Resolved]
